FAERS Safety Report 17892030 (Version 2)
Quarter: 2020Q3

REPORT INFORMATION
  Report Type: Spontaneous
  Country: IT (occurrence: IT)
  Receive Date: 20200612
  Receipt Date: 20200707
  Transmission Date: 20201103
  Serious: Yes (Hospitalization)
  Sender: FDA-Public Use
  Company Number: IT-JNJFOC-20200608293

PATIENT
  Age: 47 Year
  Sex: Male

DRUGS (1)
  1. GALANTAMINE HBR [Suspect]
     Active Substance: GALANTAMINE HYDROBROMIDE
     Indication: PRODUCT USED FOR UNKNOWN INDICATION
     Dosage: ;96 MILLIGRAM  IN TOTAL
     Route: 048
     Dates: start: 20200521, end: 20200521

REACTIONS (5)
  - Accidental overdose [Recovering/Resolving]
  - Product administration error [Recovering/Resolving]
  - Tremor [Recovering/Resolving]
  - Alcohol withdrawal syndrome [Recovering/Resolving]
  - Toxicity to various agents [Recovering/Resolving]

NARRATIVE: CASE EVENT DATE: 20200521
